FAERS Safety Report 8285158-9 (Version None)
Quarter: 2012Q2

REPORT INFORMATION
  Report Type: 
  Country: None (occurrence: None)
  Receive Date: 20120413
  Receipt Date: 20111118
  Transmission Date: 20120825
  Serious: No
  Sender: FDA-Public Use
  Company Number: US-ASTRAZENECA-2011SE59598

PATIENT
  Age: 65 Year
  Sex: Female

DRUGS (1)
  1. NEXIUM [Suspect]
     Route: 048

REACTIONS (10)
  - APHAGIA [None]
  - POST PROCEDURAL COMPLICATION [None]
  - DYSPEPSIA [None]
  - SLEEP DISORDER DUE TO A GENERAL MEDICAL CONDITION [None]
  - DYSPHAGIA [None]
  - REGURGITATION [None]
  - PAIN [None]
  - ABDOMINAL PAIN UPPER [None]
  - SCAR [None]
  - DRUG DOSE OMISSION [None]
